FAERS Safety Report 4879830-8 (Version None)
Quarter: 2006Q1

REPORT INFORMATION
  Report Type: 
  Country: None (occurrence: None)
  Receive Date: 20060113
  Receipt Date: 20060105
  Transmission Date: 20060701
  Serious: Yes (Hospitalization, Other)
  Sender: FDA-Public Use
  Company Number: JP-JNJFOC-20051205340

PATIENT
  Age: 34 Year
  Sex: Male

DRUGS (1)
  1. ITRIZOLE [Suspect]
     Indication: NAIL TINEA
     Route: 048

REACTIONS (2)
  - NEPHRITIS INTERSTITIAL [None]
  - RENAL FAILURE ACUTE [None]
